FAERS Safety Report 21157900 (Version 1)
Quarter: 2022Q3

REPORT INFORMATION
  Report Type: Spontaneous
  Country: US (occurrence: US)
  Receive Date: 20220801
  Receipt Date: 20220801
  Transmission Date: 20221026
  Serious: Yes (Other)
  Sender: FDA-Public Use
  Company Number: US-INNOCOLL PHARMACEUTICALS LIMITED-2022INN00105

PATIENT
  Age: 19 Year
  Sex: Female

DRUGS (5)
  1. BUPIVACAINE [Suspect]
     Active Substance: BUPIVACAINE
     Indication: Caesarean section
     Dosage: SPINAL BLOCK
     Route: 065
  2. BUPIVACAINE [Suspect]
     Active Substance: BUPIVACAINE
     Indication: Caesarean section
     Dosage: SPINAL BLOCK
     Route: 065
  3. OXYTOCIN [Suspect]
     Active Substance: OXYTOCIN
     Route: 042
  4. ADJUNCTIVE OPIOIDS [Concomitant]
     Indication: Caesarean section
     Route: 065
  5. UNSPECIFIED INTRAVENOUS FLUIDS [Concomitant]
     Route: 042

REACTIONS (3)
  - Distributive shock [Unknown]
  - Hypoxia [Unknown]
  - Pulmonary oedema [Unknown]
